FAERS Safety Report 7622590-8 (Version None)
Quarter: 2011Q3

REPORT INFORMATION
  Report Type: 
  Country: None (occurrence: None)
  Receive Date: 20110712
  Receipt Date: 20110625
  Transmission Date: 20111222
  Serious: Yes (Hospitalization)
  Sender: FDA-Public Use
  Company Number: 2011AP001344

PATIENT
  Age: 80 Year
  Sex: Female

DRUGS (3)
  1. SIMVASTATIN [Suspect]
     Indication: TYPE IIA HYPERLIPIDAEMIA
     Dosage: 40 MG, QD,
  2. DILTIAZEM [Suspect]
     Indication: HYPERTENSION
     Dosage: 60 MG, BID;
  3. NICERGOLINE [Concomitant]

REACTIONS (11)
  - RENAL IMPAIRMENT [None]
  - DRUG INTERACTION [None]
  - BLOOD LACTATE DEHYDROGENASE INCREASED [None]
  - BLOOD THYROID STIMULATING HORMONE INCREASED [None]
  - BLOOD CREATINE PHOSPHOKINASE INCREASED [None]
  - GLOMERULAR FILTRATION RATE DECREASED [None]
  - ALANINE AMINOTRANSFERASE INCREASED [None]
  - MYOPATHY [None]
  - MUSCULAR WEAKNESS [None]
  - BLOOD UREA INCREASED [None]
  - BLOOD CREATININE INCREASED [None]
